FAERS Safety Report 8117325-9 (Version None)
Quarter: 2012Q1

REPORT INFORMATION
  Report Type: 
  Country: None (occurrence: None)
  Receive Date: 20120206
  Receipt Date: 20120201
  Transmission Date: 20120608
  Serious: Yes (Life-Threatening, Hospitalization, Other)
  Sender: FDA-Public Use
  Company Number: JP-ASTRAZENECA-2012SE04110

PATIENT
  Age: 23053 Day
  Sex: Female
  Weight: 64 kg

DRUGS (1)
  1. CRESTOR [Suspect]
     Indication: HYPERLIPIDAEMIA
     Route: 048
     Dates: end: 20111226

REACTIONS (10)
  - RENAL FAILURE ACUTE [None]
  - DEHYDRATION [None]
  - RHABDOMYOLYSIS [None]
  - DIARRHOEA [None]
  - LOSS OF CONSCIOUSNESS [None]
  - DISSEMINATED INTRAVASCULAR COAGULATION [None]
  - CALCULUS URETERIC [None]
  - PYELONEPHRITIS ACUTE [None]
  - DECREASED APPETITE [None]
  - SEPTIC SHOCK [None]
